FAERS Safety Report 6283857-1 (Version None)
Quarter: 2009Q3

REPORT INFORMATION
  Report Type: 
  Country: None (occurrence: None)
  Receive Date: 20090723
  Receipt Date: 20090723
  Transmission Date: 20100115
  Serious: No
  Sender: FDA-Public Use
  Company Number: None

PATIENT
  Age: 27 Year
  Sex: Female
  Weight: 58.9676 kg

DRUGS (1)
  1. ULTRAM ER [Suspect]
     Indication: TEMPOROMANDIBULAR JOINT SYNDROME
     Dosage: 200 MGS 1 TIME PER DAY PO
     Route: 048
     Dates: start: 20090721, end: 20090721

REACTIONS (9)
  - DISORIENTATION [None]
  - DIZZINESS [None]
  - DRUG DEPENDENCE [None]
  - DRY MOUTH [None]
  - DYSARTHRIA [None]
  - HYPERHIDROSIS [None]
  - HYPOPHAGIA [None]
  - MIOSIS [None]
  - NAUSEA [None]
